FAERS Safety Report 7160755-2 (Version None)
Quarter: 2010Q4

REPORT INFORMATION
  Report Type: 
  Country: None (occurrence: None)
  Receive Date: 20101214
  Receipt Date: 20091211
  Transmission Date: 20110411
  Serious: No
  Sender: FDA-Public Use
  Company Number: US-AMGEN-TCS379674

PATIENT

DRUGS (12)
  1. ENBREL [Suspect]
     Indication: RHEUMATOID ARTHRITIS
     Dosage: 50 MG, 2 TIMES/WK
     Route: 058
     Dates: start: 20091101
  2. AMILORIDE HYDROCHLORIDE [Concomitant]
     Dosage: 5 MG, QD
     Route: 048
     Dates: start: 20090318
  3. CALCIUM CITRATE [Concomitant]
     Dosage: 62.5 MG, BID
     Dates: start: 20080102
  4. WARFARIN SODIUM [Concomitant]
  5. FOLIC ACID [Concomitant]
     Dosage: 1 MG, TID
     Route: 048
     Dates: start: 20090406
  6. TOPIRAMATE [Concomitant]
     Dosage: 50 MG, QD
     Route: 048
     Dates: start: 20060901
  7. TRAMADOL HYDROCHLORIDE [Concomitant]
     Dosage: 50 MG, PRN
     Route: 048
     Dates: start: 20080102
  8. ACETAMINOPHEN [Concomitant]
     Dosage: 500 MG, UNK
  9. XOPENEX [Concomitant]
     Dosage: 45 A?G, Q4H
     Route: 055
     Dates: start: 20080102
  10. CETIRIZINE HYDROCHLORIDE [Concomitant]
     Dosage: 10 MG, QD
     Dates: start: 20060901
  11. POTASSIUM CITRATE [Concomitant]
     Dosage: 1080 MG, BID
     Route: 048
     Dates: start: 20060901
  12. EPINEPHRINE [Concomitant]

REACTIONS (4)
  - ASTHMA [None]
  - HYPOAESTHESIA [None]
  - INJECTION SITE RASH [None]
  - PARAESTHESIA [None]
